FAERS Safety Report 4551706-5 (Version None)
Quarter: 2005Q1

REPORT INFORMATION
  Report Type: 
  Country: None (occurrence: None)
  Receive Date: 20050111
  Receipt Date: 20050104
  Transmission Date: 20050727
  Serious: No
  Sender: FDA-Public Use
  Company Number: 2005GB00013

PATIENT
  Age: 46 Year
  Sex: Male
  Weight: 91.4 kg

DRUGS (2)
  1. LISINOPRIL [Suspect]
  2. TEGRETOL [Concomitant]

REACTIONS (1)
  - EPILEPTIC AURA [None]
